FAERS Safety Report 6243674-5 (Version None)
Quarter: 2009Q2

REPORT INFORMATION
  Report Type: 
  Country: None (occurrence: None)
  Receive Date: 20090618
  Receipt Date: 20090202
  Transmission Date: 20091009
  Serious: Yes (Other)
  Sender: FDA-Public Use
  Company Number: CIP09000257

PATIENT
  Sex: Female

DRUGS (1)
  1. ACTONEL [Suspect]
     Dosage: 150 MG ONCE MONTHLY, ORAL
     Route: 048
     Dates: start: 20081201, end: 20090129

REACTIONS (4)
  - BACK PAIN [None]
  - GRIP STRENGTH DECREASED [None]
  - MOBILITY DECREASED [None]
  - PAIN IN EXTREMITY [None]
